FAERS Safety Report 18465127 (Version 1)
Quarter: 2020Q4

REPORT INFORMATION
  Report Type: Spontaneous
  Country: CL (occurrence: CL)
  Receive Date: 20201104
  Receipt Date: 20201104
  Transmission Date: 20210114
  Serious: Yes (Other)
  Sender: FDA-Public Use
  Company Number: CL-009507513-2011CHL001247

PATIENT
  Sex: Female

DRUGS (1)
  1. NUVARING [Suspect]
     Active Substance: ETHINYL ESTRADIOL\ETONOGESTREL
     Dosage: 1 DOSAGE FORM (1 RING)
     Route: 067
     Dates: start: 20201030

REACTIONS (8)
  - Breast swelling [Unknown]
  - Inappropriate schedule of product administration [Unknown]
  - Thirst [Unknown]
  - Pain [Unknown]
  - Device expulsion [Unknown]
  - Paraesthesia [Unknown]
  - Hyperthyroidism [Unknown]
  - Premenstrual pain [Unknown]

NARRATIVE: CASE EVENT DATE: 2020
